FAERS Safety Report 25832305 (Version 1)
Quarter: 2025Q3

REPORT INFORMATION
  Report Type: Spontaneous
  Country: US (occurrence: None)
  Receive Date: 20250919
  Receipt Date: 20250919
  Transmission Date: 20251021
  Serious: Yes (unspecified)
  Sender: FDA-CTU
  Company Number: None

PATIENT

DRUGS (1)
  1. COSMETICS [Suspect]
     Active Substance: COSMETICS
     Indication: Facial cosmetic procedure

REACTIONS (5)
  - Nodule [None]
  - Oedema [None]
  - Pain [None]
  - Dry eye [None]
  - Neoplasm [None]

NARRATIVE: CASE EVENT DATE: 20250501
